FAERS Safety Report 18477128 (Version 4)
Quarter: 2021Q1

REPORT INFORMATION
  Report Type: Report from Study
  Country: US (occurrence: US)
  Receive Date: 20201107
  Receipt Date: 20210123
  Transmission Date: 20210419
  Serious: Yes (Hospitalization)
  Sender: FDA-Public Use
  Company Number: US-SHIRE-US202013040

PATIENT
  Sex: Female

DRUGS (1)
  1. GAMMAGARD LIQUID [Suspect]
     Active Substance: HUMAN IMMUNOGLOBULIN G
     Indication: PRIMARY IMMUNODEFICIENCY SYNDROME
     Dosage: UNK
     Route: 065

REACTIONS (10)
  - Fall [Unknown]
  - Back pain [Unknown]
  - Asthenia [Unknown]
  - Arthropod bite [Unknown]
  - Gait disturbance [Unknown]
  - Tooth disorder [Unknown]
  - Urinary tract infection [Unknown]
  - Pain in extremity [Unknown]
  - Rash [Unknown]
  - Dysuria [Unknown]
